FAERS Safety Report 4599966-9 (Version None)
Quarter: 2005Q1

REPORT INFORMATION
  Report Type: 
  Country: None (occurrence: None)
  Receive Date: 20050303
  Receipt Date: 20050217
  Transmission Date: 20050727
  Serious: Yes (Disabling)
  Sender: FDA-Public Use
  Company Number: 2005SE00984

PATIENT
  Age: 43 Year
  Sex: Male

DRUGS (2)
  1. MARCAINE [Suspect]
     Indication: ANAESTHESIA
  2. ADRENALIN IN OIL INJ [Concomitant]

REACTIONS (6)
  - ANXIETY [None]
  - CRYING [None]
  - EMOTIONAL DISTRESS [None]
  - FEELING ABNORMAL [None]
  - ILLUSION [None]
  - MUSCLE SPASMS [None]
